FAERS Safety Report 10498901 (Version 1)
Quarter: 2014Q4

REPORT INFORMATION
  Report Type: Spontaneous
  Country: FR (occurrence: FR)
  Receive Date: 20141006
  Receipt Date: 20141006
  Transmission Date: 20150528
  Serious: Yes (Hospitalization, Other)
  Sender: FDA-Public Use
  Company Number: FR-PFIZER INC-2014270773

PATIENT
  Age: 59 Year
  Sex: Male

DRUGS (5)
  1. OMNIPAQUE [Suspect]
     Active Substance: IOHEXOL
     Indication: SCAN
     Dosage: 110 ML, 1X/DAY
     Route: 042
     Dates: start: 20140709, end: 20140709
  2. BISOCE [Suspect]
     Active Substance: BISOPROLOL
     Dosage: 1.25 MG, DAILY
     Route: 048
     Dates: end: 20140718
  3. PREVISCAN [Suspect]
     Active Substance: FLUINDIONE
     Dosage: UNK
     Route: 048
     Dates: end: 20140718
  4. LASILIX SPECIAL [Suspect]
     Active Substance: FUROSEMIDE
     Dosage: UNK
     Route: 048
     Dates: start: 20140507, end: 20140718
  5. TRITACE [Suspect]
     Active Substance: RAMIPRIL
     Dosage: 375 MG, DAILY
     Route: 048
     Dates: end: 20140718

REACTIONS (5)
  - Acute kidney injury [Recovering/Resolving]
  - Diarrhoea [Unknown]
  - Cardiorenal syndrome [Recovering/Resolving]
  - Ascites [Recovering/Resolving]
  - Oedema peripheral [Recovering/Resolving]

NARRATIVE: CASE EVENT DATE: 201407
